FAERS Safety Report 17841016 (Version 1)
Quarter: 2020Q2

REPORT INFORMATION
  Report Type: Spontaneous
  Country: CA (occurrence: CA)
  Receive Date: 20200529
  Receipt Date: 20200529
  Transmission Date: 20200714
  Serious: Yes (Other)
  Sender: FDA-Public Use
  Company Number: CA-TEVA-2020-CA-1241857

PATIENT
  Age: 67 Year
  Sex: Male

DRUGS (5)
  1. RANITIDINE. [Concomitant]
     Active Substance: RANITIDINE
  2. DIPHENHYDRAMINE. [Concomitant]
     Active Substance: DIPHENHYDRAMINE
  3. CARBOPLATIN. [Concomitant]
     Active Substance: CARBOPLATIN
  4. PACLITAXEL. [Suspect]
     Active Substance: PACLITAXEL
     Indication: OESOPHAGEAL CARCINOMA
     Route: 042
  5. DEXAMETHASONE. [Concomitant]
     Active Substance: DEXAMETHASONE

REACTIONS (8)
  - Throat irritation [Unknown]
  - Erythema [Unknown]
  - Pruritus [Unknown]
  - Cough [Unknown]
  - Product use in unapproved indication [Unknown]
  - Chest pain [Unknown]
  - Back pain [Unknown]
  - Off label use [Unknown]
